FAERS Safety Report 25264270 (Version 1)
Quarter: 2025Q2

REPORT INFORMATION
  Report Type: Spontaneous
  Country: US (occurrence: US)
  Receive Date: 20250502
  Receipt Date: 20250502
  Transmission Date: 20250717
  Serious: No
  Sender: KINIKSA PHARMACEUTICALS
  Company Number: US-KINIKSA PHARMACEUTICALS LTD.-2025KPU001127

PATIENT

DRUGS (1)
  1. ARCALYST [Suspect]
     Active Substance: RILONACEPT
     Indication: Cryopyrin associated periodic syndrome
     Dosage: UNK, QW
     Route: 058

REACTIONS (2)
  - Pregnancy [Unknown]
  - Maternal exposure during pregnancy [Unknown]
